FAERS Safety Report 4921399-3 (Version None)
Quarter: 2006Q1

REPORT INFORMATION
  Report Type: 
  Country: None (occurrence: None)
  Receive Date: 20060224
  Receipt Date: 20060213
  Transmission Date: 20060701
  Serious: Yes (Other)
  Sender: FDA-Public Use
  Company Number: 2006AC00285

PATIENT
  Age: 22 Year
  Sex: Male
  Weight: 25.2 kg

DRUGS (6)
  1. PROPOFOL [Suspect]
     Indication: SEDATION
  2. MIDAZOLAM HCL [Suspect]
     Indication: SEDATION
  3. KETAMINE HCL [Suspect]
     Indication: SEDATION
  4. ETOMIDATE [Suspect]
     Indication: SEDATION
  5. LISINOPRIL [Concomitant]
     Indication: CARDIOMYOPATHY
  6. LISINOPRIL [Concomitant]
     Indication: VENTRICULAR DYSFUNCTION

REACTIONS (1)
  - RESPIRATORY ARREST [None]
